FAERS Safety Report 5395652-6 (Version None)
Quarter: 2007Q3

REPORT INFORMATION
  Report Type: 
  Country: None (occurrence: None)
  Receive Date: 20070724
  Receipt Date: 20070719
  Transmission Date: 20080115
  Serious: Yes (Death)
  Sender: FDA-Public Use
  Company Number: JP-ROXANE LABORATORIES, INC-2007-DE-04121GD

PATIENT

DRUGS (4)
  1. MEXILETINE HYDROCHLORIDE [Suspect]
  2. DIGOXIN [Suspect]
  3. ANGIOTENSIN CONVERTING ENZYME INHIBITOR [Suspect]
  4. DIURETICS [Suspect]

REACTIONS (2)
  - CARDIAC FAILURE CONGESTIVE [None]
  - VENTRICULAR TACHYCARDIA [None]
